FAERS Safety Report 9480425 (Version 1)
Quarter: 2013Q3

REPORT INFORMATION
  Report Type: Spontaneous
  Country: US (occurrence: US)
  Receive Date: 20130828
  Receipt Date: 20130828
  Transmission Date: 20140515
  Serious: Yes (Other)
  Sender: FDA-Public Use
  Company Number: US-AMGEN-KDL105950

PATIENT
  Age: 69 Year
  Sex: Female

DRUGS (2)
  1. ENBREL [Suspect]
     Indication: RHEUMATOID ARTHRITIS
     Dosage: 25 MG, 2 TIMES/WK
     Route: 058
     Dates: start: 20030301
  2. METHOTREXATE [Concomitant]
     Dosage: UNK UNK, QWK
     Route: 048

REACTIONS (5)
  - Hypersensitivity [Unknown]
  - Throat tightness [Unknown]
  - Urticaria [Unknown]
  - Flushing [Unknown]
  - Hyperhidrosis [Unknown]
